FAERS Safety Report 6896790-9 (Version None)
Quarter: 2010Q3

REPORT INFORMATION
  Report Type: 
  Country: None (occurrence: None)
  Receive Date: 20100802
  Receipt Date: 20070315
  Transmission Date: 20110219
  Serious: Yes (Other)
  Sender: FDA-Public Use
  Company Number: US-PFIZER INC-2006133107

PATIENT
  Sex: Female
  Weight: 65.8 kg

DRUGS (5)
  1. LYRICA [Suspect]
     Indication: NEURALGIA
     Route: 048
     Dates: start: 20061020
  2. ZYRTEC [Concomitant]
  3. DULOXETINE HYDROCHLORIDE [Concomitant]
  4. TIZANIDINE HCL [Concomitant]
  5. DESOGESTREL AND ETHINYL ESTRADIOL [Concomitant]

REACTIONS (7)
  - DIZZINESS [None]
  - DYSARTHRIA [None]
  - HOT FLUSH [None]
  - MENTAL IMPAIRMENT [None]
  - SINUSITIS [None]
  - SOMNOLENCE [None]
  - TREMOR [None]
